FAERS Safety Report 14044759 (Version 4)
Quarter: 2018Q1

REPORT INFORMATION
  Report Type: Report from Study
  Country: None (occurrence: US)
  Receive Date: 20171005
  Receipt Date: 20180313
  Transmission Date: 20180508
  Serious: Yes (Other)
  Sender: FDA-Public Use
  Company Number: US-ABBVIE-17K-163-2117429-00

PATIENT
  Age: 45 Year
  Sex: Female

DRUGS (3)
  1. OXYCODONE [Suspect]
     Active Substance: OXYCODONE
     Indication: BACK PAIN
     Route: 065
  2. HUMIRA [Suspect]
     Active Substance: ADALIMUMAB
     Indication: RHEUMATOID ARTHRITIS
     Route: 058
     Dates: start: 20170519, end: 2017
  3. HUMIRA [Suspect]
     Active Substance: ADALIMUMAB
     Route: 058
     Dates: start: 2017

REACTIONS (10)
  - Somnolence [Unknown]
  - Procedural pain [Unknown]
  - Injection site erythema [Unknown]
  - Loss of personal independence in daily activities [Unknown]
  - Rheumatoid arthritis [Recovering/Resolving]
  - Injection site pruritus [Unknown]
  - Intervertebral disc protrusion [Recovering/Resolving]
  - Dizziness [Unknown]
  - Injection site swelling [Unknown]
  - Rheumatoid arthritis [Recovered/Resolved]

NARRATIVE: CASE EVENT DATE: 2017
